FAERS Safety Report 7320434-5 (Version None)
Quarter: 2011Q1

REPORT INFORMATION
  Report Type: 
  Country: None (occurrence: None)
  Receive Date: 20110228
  Receipt Date: 20110218
  Transmission Date: 20110831
  Serious: Yes (Other)
  Sender: FDA-Public Use
  Company Number: A0915349A

PATIENT
  Sex: Male

DRUGS (1)
  1. ADVAIR DISKUS 100/50 [Suspect]
     Indication: ASTHMA
     Route: 065

REACTIONS (5)
  - DRUG INEFFECTIVE [None]
  - EXERCISE TOLERANCE DECREASED [None]
  - EXPIRED DRUG ADMINISTERED [None]
  - ASTHMA [None]
  - ACTIVITIES OF DAILY LIVING IMPAIRED [None]
